FAERS Safety Report 9840664 (Version 1)
Quarter: 2014Q1

REPORT INFORMATION
  Report Type: Spontaneous
  Country: US (occurrence: US)
  Receive Date: 20140124
  Receipt Date: 20140124
  Transmission Date: 20141002
  Serious: No
  Sender: FDA-Public Use
  Company Number: US-PFIZER INC-2014021653

PATIENT
  Age: 76 Year
  Sex: Female
  Weight: 81.63 kg

DRUGS (2)
  1. XELJANZ [Suspect]
     Indication: RHEUMATOID ARTHRITIS
     Dosage: 5 MG, 2X/DAY
     Route: 048
     Dates: start: 20140101, end: 20140117
  2. PREDNISONE [Concomitant]
     Indication: POLYMYALGIA RHEUMATICA
     Dosage: UNK

REACTIONS (5)
  - Urticaria [Unknown]
  - Oral mucosal erythema [Unknown]
  - Hypoaesthesia oral [Unknown]
  - Pruritus [Unknown]
  - Rash [Unknown]
